FAERS Safety Report 6941011-1 (Version None)
Quarter: 2010Q3

REPORT INFORMATION
  Report Type: 
  Country: None (occurrence: None)
  Receive Date: 20100825
  Receipt Date: 20100818
  Transmission Date: 20110219
  Serious: Yes (Hospitalization)
  Sender: FDA-Public Use
  Company Number: B0650111A

PATIENT
  Sex: Female
  Weight: 49 kg

DRUGS (4)
  1. TYKERB [Suspect]
     Indication: BREAST CANCER
     Dosage: 1250MG PER DAY
     Route: 048
     Dates: start: 20090812, end: 20100310
  2. XELODA [Suspect]
     Dosage: 2400MG PER DAY
     Route: 048
     Dates: start: 20090819, end: 20100310
  3. HERCEPTIN [Concomitant]
     Indication: BREAST CANCER
     Dosage: 84MG PER DAY
     Dates: start: 20091216, end: 20100310
  4. OXYCONTIN [Concomitant]
     Indication: PAIN
     Route: 048
     Dates: start: 20090812

REACTIONS (8)
  - COUGH [None]
  - CREPITATIONS [None]
  - DYSPNOEA [None]
  - INTERSTITIAL LUNG DISEASE [None]
  - OXYGEN SATURATION DECREASED [None]
  - PRODUCTIVE COUGH [None]
  - RALES [None]
  - TACHYPNOEA [None]
